FAERS Safety Report 9782951 (Version 2)
Quarter: 2014Q1

REPORT INFORMATION
  Report Type: Spontaneous
  Country: PT (occurrence: PT)
  Receive Date: 20131226
  Receipt Date: 20140212
  Transmission Date: 20141002
  Serious: Yes (Hospitalization)
  Sender: FDA-Public Use
  Company Number: PHHY2013PT148202

PATIENT
  Age: 80 Year
  Sex: Male

DRUGS (4)
  1. EVEROLIMUS [Suspect]
     Indication: LIVER TRANSPLANT
     Dosage: 0.5 MG, BID
  2. CORTICOSTEROIDS [Concomitant]
     Dosage: UNK UKN, UNK
  3. CORTICOSTEROIDS [Concomitant]
     Dosage: 7.5 MG PER DAY
  4. CORTICOSTEROIDS [Concomitant]
     Dosage: DOSE REDUCED

REACTIONS (1)
  - Bone pain [Recovering/Resolving]
